FAERS Safety Report 13074975 (Version 1)
Quarter: 2016Q4

REPORT INFORMATION
  Report Type: Other
  Country: US (occurrence: US)
  Receive Date: 20161230
  Receipt Date: 20161230
  Transmission Date: 20170207
  Serious: Yes (Hospitalization)
  Sender: FDA-Public Use
  Company Number: US-NOVEL LABORATORIES, INC-2016-05803

PATIENT
  Age: 60 Year
  Sex: Male
  Weight: 130.6 kg

DRUGS (1)
  1. SULFAMETHOXAZOLE/TRIMETHOPRIM [Suspect]
     Active Substance: SULFAMETHOXAZOLE\TRIMETHOPRIM
     Indication: LOCALISED INFECTION
     Route: 048

REACTIONS (3)
  - Glomerulonephritis rapidly progressive [Not Recovered/Not Resolved]
  - Pulmonary oedema [Unknown]
  - Stevens-Johnson syndrome [Unknown]
